FAERS Safety Report 20052638 (Version 1)
Quarter: 2021Q4

REPORT INFORMATION
  Report Type: Report from Study
  Country: US (occurrence: US)
  Receive Date: 20211110
  Receipt Date: 20211110
  Transmission Date: 20220303
  Serious: Yes (Other)
  Sender: FDA-Public Use
  Company Number: US-JNJFOC-20211110368

PATIENT
  Age: 81 Year
  Sex: Female

DRUGS (3)
  1. SPRAVATO [Suspect]
     Active Substance: ESKETAMINE
     Indication: Depression
     Dosage: 56 MG (TOTAL 1 DOSE)
     Dates: start: 20210330, end: 20210330
  2. SPRAVATO [Suspect]
     Active Substance: ESKETAMINE
     Dosage: 84 MG , TOTAL 50 DOSES
     Dates: start: 20210402, end: 20211029
  3. SPRAVATO [Suspect]
     Active Substance: ESKETAMINE
     Dosage: 56 MG ONE TOTAL DOSE
     Dates: start: 20211102, end: 20211102

REACTIONS (3)
  - Unresponsive to stimuli [Recovered/Resolved]
  - Blood glucose decreased [Recovered/Resolved]
  - Dissociation [Recovered/Resolved]

NARRATIVE: CASE EVENT DATE: 20211102
